FAERS Safety Report 21766922 (Version 1)
Quarter: 2022Q4

REPORT INFORMATION
  Report Type: Spontaneous
  Country: JP (occurrence: JP)
  Receive Date: 20221222
  Receipt Date: 20221222
  Transmission Date: 20230113
  Serious: Yes (Other)
  Sender: FDA-Public Use
  Company Number: JP-PFIZER INC-PV202200124166

PATIENT
  Age: 6 Decade
  Sex: Male

DRUGS (2)
  1. FLUCONAZOLE [Interacting]
     Active Substance: FLUCONAZOLE
     Indication: Prophylaxis
     Dosage: 100 MG
     Route: 048
  2. AMLODIPINE [Interacting]
     Active Substance: AMLODIPINE BESYLATE
     Indication: Hypertension
     Dosage: UNK
     Route: 048

REACTIONS (4)
  - Drug interaction [Unknown]
  - Hypotension [Unknown]
  - Drug level increased [Unknown]
  - Dizziness [Recovering/Resolving]
